FAERS Safety Report 4597078-1 (Version None)
Quarter: 2005Q1

REPORT INFORMATION
  Report Type: 
  Country: None (occurrence: None)
  Receive Date: 20050301
  Receipt Date: 20050216
  Transmission Date: 20050727
  Serious: Yes (Other)
  Sender: FDA-Public Use
  Company Number: 2005034279

PATIENT
  Age: 35 Year
  Sex: Female

DRUGS (2)
  1. DIFLORASONE DIACETATE [Suspect]
     Indication: ATOPY
     Dosage: (1 IN 45 D), TOPICAL
  2. HYDROCORTISONE BUTYRATE (HYDROCORTISONE BUTYRATE) [Concomitant]

REACTIONS (1)
  - GLAUCOMA [None]
